FAERS Safety Report 6182053-6 (Version None)
Quarter: 2009Q2

REPORT INFORMATION
  Report Type: 
  Country: None (occurrence: None)
  Receive Date: 20090507
  Receipt Date: 20090503
  Transmission Date: 20091009
  Serious: Yes (Other)
  Sender: FDA-Public Use
  Company Number: MX-SP-2009-02036

PATIENT
  Age: 74 Year
  Sex: Male

DRUGS (1)
  1. BCG  THERAPEUTICS [Suspect]
     Indication: DRUG USE FOR UNKNOWN INDICATION
     Dosage: NOT REPORTED
     Route: 065

REACTIONS (6)
  - ARTHRITIS REACTIVE [None]
  - BACK PAIN [None]
  - CONJUNCTIVAL HYPERAEMIA [None]
  - DYSURIA [None]
  - PAIN [None]
  - POLLAKIURIA [None]
